FAERS Safety Report 9064293 (Version 2)
Quarter: 2013Q3

REPORT INFORMATION
  Report Type: Report from Study
  Country: JP (occurrence: JP)
  Receive Date: 20130128
  Receipt Date: 20130821
  Transmission Date: 20140515
  Serious: Yes (Death)
  Sender: FDA-Public Use
  Company Number: JP-UCBSA-076359

PATIENT
  Age: 88 Year
  Sex: Male

DRUGS (5)
  1. E KEPPRA [Suspect]
     Indication: PARTIAL SEIZURES WITH SECONDARY GENERALISATION
     Route: 048
     Dates: start: 20121204, end: 20121211
  2. AMARYL [Concomitant]
     Dosage: 1 MG
     Route: 050
     Dates: end: 20121211
  3. PLETAAL OD [Concomitant]
     Dosage: 200 MG
     Route: 050
     Dates: end: 20121211
  4. ALEVIATIN [Concomitant]
     Indication: PARTIAL SEIZURES WITH SECONDARY GENERALISATION
     Dosage: 250 MG
     Route: 050
     Dates: end: 20121211
  5. HARNAL [Concomitant]
     Dosage: 0.2 MG
     Route: 050
     Dates: end: 20121211

REACTIONS (1)
  - Cerebral infarction [Fatal]
